FAERS Safety Report 15433931 (Version 1)
Quarter: 2018Q3

REPORT INFORMATION
  Report Type: Spontaneous
  Country: US (occurrence: US)
  Receive Date: 20180921
  Receipt Date: 20180921
  Transmission Date: 20181010
  Serious: Yes (Other)
  Sender: FDA-Public Use
  Company Number: None

PATIENT
  Age: 67 Year
  Sex: Female
  Weight: 80.1 kg

DRUGS (11)
  1. D [Concomitant]
  2. CALCIUM [Concomitant]
     Active Substance: CALCIUM
  3. PREVOGEN [Concomitant]
  4. NATURE THYROID 2.5GR (162.5MG) TB (1?A?DAY [Suspect]
     Active Substance: THYROID, UNSPECIFIED
     Indication: HYPOTHYROIDISM
     Route: 048
     Dates: start: 20180101, end: 20180908
  5. NAPROXIN [Concomitant]
     Active Substance: NAPROXEN
  6. MULTI B [Concomitant]
  7. LEVOTHYROXINE. [Concomitant]
     Active Substance: LEVOTHYROXINE
  8. OMEPRAZOLE. [Concomitant]
     Active Substance: OMEPRAZOLE
  9. SERTRALINE [Concomitant]
     Active Substance: SERTRALINE HYDROCHLORIDE
  10. MULTI WOMENS VITAMIN [Concomitant]
  11. MAGNESIUM [Concomitant]
     Active Substance: MAGNESIUM

REACTIONS (4)
  - Weight decreased [None]
  - Papule [None]
  - Pruritus [None]
  - Paraesthesia [None]

NARRATIVE: CASE EVENT DATE: 20180910
